FAERS Safety Report 13592687 (Version 1)
Quarter: 2017Q2

REPORT INFORMATION
  Report Type: Spontaneous
  Country: IT (occurrence: IT)
  Receive Date: 20170530
  Receipt Date: 20170530
  Transmission Date: 20170830
  Serious: Yes (Hospitalization)
  Sender: FDA-Public Use
  Company Number: IT-MALLINCKRODT-T201702259

PATIENT
  Age: 36 Year
  Sex: Female

DRUGS (4)
  1. AUGMENTIN [Concomitant]
     Active Substance: AMOXICILLIN\CLAVULANATE POTASSIUM
     Dosage: TABLET
  2. OKI [Concomitant]
     Active Substance: KETOPROFEN LYSINE
     Dosage: GRANULES FOR ORAL SOLUTION
     Route: 065
  3. OFIRMEV [Suspect]
     Active Substance: ACETAMINOPHEN
     Indication: PYREXIA
     Dosage: 10 MG/ML, UNK
     Route: 065
  4. TACHIPIRINA [Suspect]
     Active Substance: ACETAMINOPHEN
     Indication: PYREXIA
     Dosage: 500 MG, UNK
     Route: 065

REACTIONS (4)
  - Pruritus [Unknown]
  - Urticaria [Unknown]
  - Dermatitis exfoliative [Unknown]
  - Erythema [Unknown]

NARRATIVE: CASE EVENT DATE: 20170302
